FAERS Safety Report 10332538 (Version 1)
Quarter: 2014Q3

REPORT INFORMATION
  Report Type: Spontaneous
  Country: FR (occurrence: FR)
  Receive Date: 20140722
  Receipt Date: 20140722
  Transmission Date: 20150326
  Serious: Yes (Hospitalization)
  Sender: FDA-Public Use
  Company Number: FR-ASTRAZENECA-2014SE51801

PATIENT
  Age: 28205 Day
  Sex: Male

DRUGS (14)
  1. LOGIRENE [Concomitant]
  2. RISPERDAL [Suspect]
     Active Substance: RISPERIDONE
     Route: 048
     Dates: start: 20140611
  3. LESCOL [Concomitant]
     Active Substance: FLUVASTATIN SODIUM
  4. HEMIGOXINE [Concomitant]
     Active Substance: DIGOXIN
  5. FORTIMEL [Concomitant]
     Active Substance: DIETARY SUPPLEMENT
  6. MANTADIX [Concomitant]
     Active Substance: AMANTADINE HYDROCHLORIDE
  7. AZILECT [Concomitant]
     Active Substance: RASAGILINE MESYLATE
  8. PRADAXA [Concomitant]
     Active Substance: DABIGATRAN ETEXILATE MESYLATE
  9. AVLOCARDYL [Concomitant]
     Active Substance: PROPRANOLOL HYDROCHLORIDE
  10. XEROQUEL [Suspect]
     Active Substance: QUETIAPINE FUMARATE
     Route: 048
     Dates: start: 20140607, end: 20140611
  11. FORLAX [Concomitant]
     Active Substance: POLYETHYLENE GLYCOL 4000
  12. ALPRAZOLAM. [Concomitant]
     Active Substance: ALPRAZOLAM
  13. SINEMET [Concomitant]
     Active Substance: CARBIDOPA\LEVODOPA
  14. MODOPAR [Concomitant]
     Active Substance: BENSERAZIDE HYDROCHLORIDE\LEVODOPA

REACTIONS (2)
  - Parkinson^s disease [Recovered/Resolved]
  - Hallucination [Recovered/Resolved]

NARRATIVE: CASE EVENT DATE: 20140607
